FAERS Safety Report 23653846 (Version 1)
Quarter: 2024Q1

REPORT INFORMATION
  Report Type: Spontaneous
  Country: US (occurrence: None)
  Receive Date: 20240319
  Receipt Date: 20240319
  Transmission Date: 20240410
  Serious: Yes (Other)
  Sender: FDA-Public Use
  Company Number: None

PATIENT
  Age: 66 Year
  Sex: Male
  Weight: 78.75 kg

DRUGS (4)
  1. JATENZO [Suspect]
     Active Substance: TESTOSTERONE UNDECANOATE
     Dosage: FREQUENCY : TWICE A DAY;?
     Route: 048
     Dates: start: 20240209, end: 20240318
  2. Ramapril 5mg [Concomitant]
  3. ALLOPURINOL [Concomitant]
     Active Substance: ALLOPURINOL
  4. CRESTOR [Concomitant]
     Active Substance: ROSUVASTATIN CALCIUM

REACTIONS (2)
  - Blood pressure increased [None]
  - Back pain [None]

NARRATIVE: CASE EVENT DATE: 20240315
